FAERS Safety Report 8435851-X (Version None)
Quarter: 2012Q2

REPORT INFORMATION
  Report Type: 
  Country: None (occurrence: None)
  Receive Date: 20120614
  Receipt Date: 20120607
  Transmission Date: 20120825
  Serious: Yes (Hospitalization, Other)
  Sender: FDA-Public Use
  Company Number: TW-ROCHE-1045523

PATIENT
  Sex: Female

DRUGS (19)
  1. RECORMON [Suspect]
     Route: 058
     Dates: start: 20110211, end: 20111007
  2. RECORMON [Suspect]
     Route: 058
     Dates: start: 20120106, end: 20120203
  3. TENORMIN [Concomitant]
     Route: 048
  4. NESPO [Suspect]
     Dates: start: 20111104, end: 20120106
  5. LEUCOVORIN CALCIUM [Concomitant]
     Route: 048
     Dates: start: 20111203
  6. RECORMON [Suspect]
     Indication: NEPHROGENIC ANAEMIA
     Route: 058
     Dates: start: 20060530, end: 20110211
  7. RECORMON [Suspect]
     Route: 058
     Dates: start: 20111104, end: 20120106
  8. NESPO [Suspect]
     Indication: NEPHROGENIC ANAEMIA
     Route: 058
     Dates: start: 20110211, end: 20111007
  9. FENOFIBRATE [Concomitant]
     Route: 048
     Dates: start: 20110603
  10. DILTIAZEM HCL [Concomitant]
     Route: 048
     Dates: start: 20120320, end: 20120320
  11. DOXABEN [Concomitant]
     Route: 048
     Dates: start: 20111012
  12. MIRCERA [Suspect]
     Indication: NEPHROGENIC ANAEMIA
     Route: 058
     Dates: start: 20111007, end: 20111104
  13. REPAGLINIDE [Concomitant]
     Route: 048
  14. SIGMART [Concomitant]
     Route: 048
     Dates: start: 20110720
  15. BC POWDERS [Concomitant]
     Route: 048
  16. CAPHOSOL [Concomitant]
     Route: 048
  17. PLENDIL [Concomitant]
     Route: 048
     Dates: start: 20120203
  18. PROPAFENONE HCL [Concomitant]
  19. DILTIAZEM HCL [Concomitant]
     Route: 048
     Dates: start: 20110817, end: 20120305

REACTIONS (2)
  - HAEMORRHOIDAL HAEMORRHAGE [None]
  - HAEMOGLOBIN DECREASED [None]
